FAERS Safety Report 12442494 (Version 2)
Quarter: 2016Q2

REPORT INFORMATION
  Report Type: Spontaneous
  Country: FR (occurrence: FR)
  Receive Date: 20160607
  Receipt Date: 20160613
  Transmission Date: 20160815
  Serious: Yes (Hospitalization)
  Sender: FDA-Public Use
  Company Number: FR-PFIZER INC-2016287280

PATIENT
  Age: 84 Year
  Sex: Female

DRUGS (7)
  1. RAMIPRIL. [Suspect]
     Active Substance: RAMIPRIL
     Indication: CARDIOMYOPATHY
     Dosage: UNK
     Route: 048
     Dates: end: 20140723
  2. CARDENSIEL [Suspect]
     Active Substance: BISOPROLOL FUMARATE
     Indication: CARDIOMYOPATHY
     Dosage: UNK
     Route: 048
     Dates: end: 20140723
  3. LASILIX /00032601/ [Concomitant]
     Active Substance: FUROSEMIDE
     Dosage: UNK
  4. NORSET [Concomitant]
     Active Substance: MIRTAZAPINE
     Dosage: UNK
  5. PREVISCAN /00789001/ [Concomitant]
     Active Substance: FLUINDIONE
  6. ALDACTONE [Suspect]
     Active Substance: SPIRONOLACTONE
     Indication: CARDIOMYOPATHY
     Dosage: UNK
     Route: 048
     Dates: end: 20140723
  7. CORDARONE [Suspect]
     Active Substance: AMIODARONE HYDROCHLORIDE
     Indication: CARDIOMYOPATHY
     Dosage: UNK
     Route: 048
     Dates: end: 20140723

REACTIONS (4)
  - Acute kidney injury [Unknown]
  - Sinus node dysfunction [Recovered/Resolved]
  - Electrocardiogram QT prolonged [Unknown]
  - Hyperkalaemia [Unknown]

NARRATIVE: CASE EVENT DATE: 20140723
